FAERS Safety Report 9492461 (Version 2)
Quarter: 2013Q3

REPORT INFORMATION
  Report Type: Report from Study
  Country: US (occurrence: US)
  Receive Date: 20130830
  Receipt Date: 20130909
  Transmission Date: 20140515
  Serious: Yes (Other)
  Sender: FDA-Public Use
  Company Number: US-ABBOTT-13P-163-1137036-00

PATIENT
  Sex: Female

DRUGS (10)
  1. HUMIRA [Suspect]
     Indication: RHEUMATOID ARTHRITIS
  2. ATORVASTATIN [Concomitant]
     Indication: BLOOD CHOLESTEROL INCREASED
     Dosage: 40 MG DAILY
     Route: 048
  3. CHOLECALCIFEROL [Concomitant]
     Indication: VITAMIN SUPPLEMENTATION
  4. CLOPIDOGREL [Concomitant]
     Indication: ANTICOAGULANT THERAPY
     Dosage: 75 MG DAILY
     Route: 048
  5. DIVALPROEX SODIUM [Concomitant]
     Indication: BIPOLAR DISORDER
     Route: 048
  6. FOSINOPRIL [Concomitant]
     Indication: CARDIAC DISORDER
     Route: 048
  7. LEVOTHYROXINE [Concomitant]
     Indication: THYROID DISORDER
     Dosage: 0.5 MCG DAILY
     Route: 048
  8. METOPROLOL [Concomitant]
     Indication: CARDIAC DISORDER
     Dosage: 200 MG DAILY
     Route: 048
  9. PREGABALIN [Concomitant]
     Indication: FIBROMYALGIA
  10. SERTRALINE [Concomitant]
     Indication: SEDATIVE THERAPY
     Dosage: 100 MG DAILY
     Route: 048

REACTIONS (5)
  - Urinary incontinence [Not Recovered/Not Resolved]
  - Swollen tongue [Not Recovered/Not Resolved]
  - Lip swelling [Not Recovered/Not Resolved]
  - Dysphagia [Not Recovered/Not Resolved]
  - Respiratory disorder [Not Recovered/Not Resolved]
